FAERS Safety Report 17084203 (Version 1)
Quarter: 2019Q4

REPORT INFORMATION
  Report Type: Spontaneous
  Country: CN (occurrence: CN)
  Receive Date: 20191127
  Receipt Date: 20191127
  Transmission Date: 20200122
  Serious: Yes (Death, Other)
  Sender: FDA-Public Use
  Company Number: CN-HONG KONG KING-FRIEND INDUSTRIAL COMPANY-2019NKF00028

PATIENT
  Age: 7 Month
  Sex: Male
  Weight: 6 kg

DRUGS (1)
  1. HEPARIN SODIUM. [Suspect]
     Active Substance: HEPARIN SODIUM
     Dosage: 1 MG/KG
     Route: 065

REACTIONS (3)
  - Asphyxia [Fatal]
  - Heparin-induced thrombocytopenia [Fatal]
  - Peripheral artery thrombosis [Unknown]
